FAERS Safety Report 13770569 (Version 1)
Quarter: 2017Q3

REPORT INFORMATION
  Report Type: Spontaneous
  Country: US (occurrence: US)
  Receive Date: 20170719
  Receipt Date: 20170719
  Transmission Date: 20171127
  Serious: Yes (Hospitalization, Other)
  Sender: FDA-Public Use
  Company Number: None

PATIENT
  Age: 39 Year
  Sex: Male
  Weight: 69.75 kg

DRUGS (5)
  1. LATUDA [Suspect]
     Active Substance: LURASIDONE HYDROCHLORIDE
     Indication: DEPRESSION
     Dosage: ?          OTHER STRENGTH:MG/MG;QUANTITY:30 TABLET(S);?
     Route: 048
  2. LOREZAPAM [Concomitant]
  3. SEROQUEL XR [Concomitant]
     Active Substance: QUETIAPINE FUMARATE
  4. MIRTAZAPINE. [Concomitant]
     Active Substance: MIRTAZAPINE
  5. ESCITILOPRAM [Concomitant]

REACTIONS (8)
  - Hypersomnia [None]
  - Urinary retention [None]
  - Incontinence [None]
  - Affective disorder [None]
  - Paranoia [None]
  - Depression [None]
  - Sleep disorder [None]
  - Weight increased [None]

NARRATIVE: CASE EVENT DATE: 20170719
